FAERS Safety Report 13175218 (Version 1)
Quarter: 2017Q1

REPORT INFORMATION
  Report Type: Spontaneous
  Country: US (occurrence: US)
  Receive Date: 20170131
  Receipt Date: 20170131
  Transmission Date: 20170428
  Serious: Yes (Hospitalization)
  Sender: FDA-Public Use
  Company Number: None

PATIENT
  Age: 61 Year
  Sex: Male
  Weight: 59.02 kg

DRUGS (5)
  1. METHYLPREDNISOLONE (SOLU-MEDROL) [Concomitant]
  2. IPILIMUMAB 1MG/KG [Suspect]
     Active Substance: IPILIMUMAB
     Indication: MALIGNANT MELANOMA
     Route: 042
     Dates: start: 20160818, end: 20161222
  3. NIVOLUMAB 3MG/KG [Suspect]
     Active Substance: NIVOLUMAB
     Indication: ADJUVANT THERAPY
     Route: 042
     Dates: start: 20160818, end: 20170105
  4. NIVOLUMAB 3MG/KG [Suspect]
     Active Substance: NIVOLUMAB
     Indication: MALIGNANT MELANOMA
     Route: 042
     Dates: start: 20160818, end: 20170105
  5. IPILIMUMAB 1MG/KG [Suspect]
     Active Substance: IPILIMUMAB
     Indication: ADJUVANT THERAPY
     Route: 042
     Dates: start: 20160818, end: 20161222

REACTIONS (3)
  - Immune system disorder [None]
  - Immune-mediated adverse reaction [None]
  - Hepatitis [None]

NARRATIVE: CASE EVENT DATE: 20170126
